FAERS Safety Report 15377855 (Version 1)
Quarter: 2018Q3

REPORT INFORMATION
  Report Type: Spontaneous
  Country: IN (occurrence: IN)
  Receive Date: 20180913
  Receipt Date: 20180913
  Transmission Date: 20181010
  Serious: Yes (Hospitalization)
  Sender: FDA-Public Use
  Company Number: IN-MYLANLABS-2018M1065435

PATIENT
  Age: 10 Year
  Sex: Male
  Weight: 28.7 kg

DRUGS (2)
  1. PREDNISOLONE. [Suspect]
     Active Substance: PREDNISOLONE
     Indication: PYREXIA
     Route: 048
  2. PREDNISOLONE. [Suspect]
     Active Substance: PREDNISOLONE
     Indication: SWELLING

REACTIONS (7)
  - Pericarditis tuberculous [Recovering/Resolving]
  - Cardiomegaly [Unknown]
  - Tuberculosis [Recovering/Resolving]
  - Infective pericardial effusion [Recovered/Resolved]
  - Eosinophilia [Unknown]
  - Masked fever [Recovering/Resolving]
  - Infectious pleural effusion [Recovered/Resolved]
